FAERS Safety Report 8679272 (Version 3)
Quarter: 2012Q4

REPORT INFORMATION
  Report Type: 
  Country: GB (occurrence: GB)
  Receive Date: 20120724
  Receipt Date: 20121009
  Transmission Date: 20130627
  Serious: Yes (Other)
  Sender: FDA-Public Use
  Company Number: PHFR2012GB004111

PATIENT
  Age: 72 Year
  Sex: Male
  Weight: 81 kg

DRUGS (1)
  1. TEGRETOL [Suspect]

REACTIONS (2)
  - Reticulocyte count increased [Recovering/Resolving]
  - Inappropriate antidiuretic hormone secretion [Unknown]
